FAERS Safety Report 21583281 (Version 2)
Quarter: 2022Q4

REPORT INFORMATION
  Report Type: Spontaneous
  Country: CL (occurrence: CL)
  Receive Date: 20221111
  Receipt Date: 20221213
  Transmission Date: 20230112
  Serious: Yes (Other)
  Sender: FDA-Public Use
  Company Number: CL-GLAXOSMITHKLINE-CL2022AMR163359

PATIENT

DRUGS (3)
  1. FLUTICASONE PROPIONATE [Suspect]
     Active Substance: FLUTICASONE PROPIONATE
     Indication: Asthma
     Dosage: UNK
     Dates: start: 20220514
  2. FLUTICASONE PROPIONATE [Suspect]
     Active Substance: FLUTICASONE PROPIONATE
     Indication: Asthma
     Dosage: 1 PUFF(S), BID (EVERY 12 HOURS)
     Route: 048
     Dates: start: 202208
  3. ALBUTEROL SULFATE [Suspect]
     Active Substance: ALBUTEROL SULFATE
     Indication: Asthmatic crisis
     Dosage: UNK

REACTIONS (5)
  - Asthmatic crisis [Recovered/Resolved]
  - Nasopharyngitis [Recovered/Resolved]
  - Secretion discharge [Not Recovered/Not Resolved]
  - Intentional product misuse [Unknown]
  - Incorrect route of product administration [Unknown]
